FAERS Safety Report 5531714-8 (Version None)
Quarter: 2007Q4

REPORT INFORMATION
  Report Type: 
  Country: None (occurrence: None)
  Receive Date: 20071128
  Receipt Date: 20071117
  Transmission Date: 20080405
  Serious: Yes (Other)
  Sender: FDA-Public Use
  Company Number: CHPA2007US12400

PATIENT
  Age: 8 Year
  Sex: Female

DRUGS (2)
  1. TRIAMINIC NIGHT TIME COLD + COUGH (NCH)(DIPHENHYDRAMINE, PHENYLEPHRINE [Suspect]
     Dosage: ORAL
     Route: 048
  2. ^ALDEEROL^(UNKNOWN) [Suspect]

REACTIONS (3)
  - HEART RATE INCREASED [None]
  - MYDRIASIS [None]
  - PALLOR [None]
